FAERS Safety Report 12920608 (Version 1)
Quarter: 2016Q4

REPORT INFORMATION
  Report Type: Spontaneous
  Country: US (occurrence: US)
  Receive Date: 20161106
  Receipt Date: 20161106
  Transmission Date: 20170207
  Serious: Yes (Hospitalization)
  Sender: FDA-Public Use
  Company Number: None

PATIENT
  Age: 77 Year
  Sex: Female
  Weight: 67.5 kg

DRUGS (7)
  1. CALCIUM [Concomitant]
     Active Substance: CALCIUM
  2. XANAX [Concomitant]
     Active Substance: ALPRAZOLAM
  3. HYOSCYAMINE 0.125MG SUBLINGUAL T [Suspect]
     Active Substance: HYOSCYAMINE
     Indication: IRRITABLE BOWEL SYNDROME
     Dosage: ?          QUANTITY:3 TABLET(S);?
     Route: 060
  4. ALIGN [Concomitant]
     Active Substance: BIFIDOBACTERIUM LONGUM SUBSP. INFANTIS
  5. NADOLOL. [Concomitant]
     Active Substance: NADOLOL
  6. ZYRTEC [Concomitant]
     Active Substance: CETIRIZINE HYDROCHLORIDE
  7. PRILOSEC [Concomitant]
     Active Substance: OMEPRAZOLE MAGNESIUM

REACTIONS (9)
  - Vision blurred [None]
  - Dehydration [None]
  - Gastroenteritis viral [None]
  - Haemorrhoids thrombosed [None]
  - Dry mouth [None]
  - Blood pressure abnormal [None]
  - Dizziness [None]
  - Pain in extremity [None]
  - Heart rate abnormal [None]

NARRATIVE: CASE EVENT DATE: 20160405
